FAERS Safety Report 8156200-0 (Version None)
Quarter: 2012Q1

REPORT INFORMATION
  Report Type: 
  Country: None (occurrence: None)
  Receive Date: 20120216
  Receipt Date: 20120202
  Transmission Date: 20120608
  Serious: Yes (Other)
  Sender: FDA-Public Use
  Company Number: 2012000004

PATIENT
  Age: 38 Year
  Sex: Female

DRUGS (1)
  1. ACEON [Suspect]
     Indication: HYPERTENSION
     Dosage: ORAL
     Route: 048
     Dates: start: 20110101, end: 20120101

REACTIONS (4)
  - THOUGHT INSERTION [None]
  - BRADYPHRENIA [None]
  - PERSONALITY CHANGE [None]
  - PSYCHOTIC DISORDER [None]
